FAERS Safety Report 14162184 (Version 2)
Quarter: 2017Q4

REPORT INFORMATION
  Report Type: Spontaneous
  Country: GB (occurrence: GB)
  Receive Date: 20171106
  Receipt Date: 20171205
  Transmission Date: 20180321
  Serious: Yes (Other)
  Sender: FDA-Public Use
  Company Number: GB-NOVOPROD-566960

PATIENT
  Age: 57 Year
  Sex: Male
  Weight: 100 kg

DRUGS (13)
  1. LISINOPRIL. [Concomitant]
     Active Substance: LISINOPRIL
     Dosage: 20 MG, BID
     Route: 065
     Dates: start: 20160812
  2. DILTIAZEM. [Concomitant]
     Active Substance: DILTIAZEM
     Dosage: 300 MG, QD
     Route: 065
     Dates: start: 20160812
  3. ATORVASTATIN [Concomitant]
     Active Substance: ATORVASTATIN
     Dosage: 40 MG, QD - NIGHT
     Route: 065
     Dates: start: 20160812
  4. COCODAMOL [Concomitant]
     Active Substance: ACETAMINOPHEN\CODEINE PHOSPHATE
     Dosage: 1-2 TABS 4-6 HOURS IF REQUIRED1 TAB, PRN
     Route: 065
     Dates: start: 20161005
  5. DOXAZOSIN [Concomitant]
     Active Substance: DOXAZOSIN\DOXAZOSIN MESYLATE
     Indication: PRODUCT USED FOR UNKNOWN INDICATION
     Dosage: 8 MG, QD - 4 MG - 2 TABLETS TWICE DAILY)
     Route: 065
     Dates: start: 20160812
  6. NOVORAPID [Suspect]
     Active Substance: INSULIN ASPART
     Indication: PRODUCT USED FOR UNKNOWN INDICATION
     Dosage: 15 U, TID ON AVERAGE
     Route: 065
     Dates: start: 20160812
  7. SILDENAFIL. [Concomitant]
     Active Substance: SILDENAFIL
     Dosage: 100 MG AS DIRECTED
     Route: 065
  8. ALZAIN [Concomitant]
     Dosage: 50 MG, BID
     Route: 065
  9. DULOXETINE. [Concomitant]
     Active Substance: DULOXETINE
     Dosage: 30 MG, QD - NIGHT
     Route: 065
     Dates: start: 20161005
  10. CANESTEN HC [Concomitant]
     Active Substance: CLOTRIMAZOLE\HYDROCORTISONE
     Dosage: APPLY TWICE DAILY
     Route: 061
  11. LEVEMIR [Suspect]
     Active Substance: INSULIN DETEMIR
     Indication: PRODUCT USED FOR UNKNOWN INDICATION
     Dosage: 22 U, QD
     Route: 058
     Dates: start: 20160812
  12. FUROSEMIDE. [Concomitant]
     Active Substance: FUROSEMIDE
     Indication: PRODUCT USED FOR UNKNOWN INDICATION
     Dosage: 160 MG  (40 MG IN MORNING)
     Route: 065
     Dates: start: 20170104
  13. OMEPRAZOLE. [Concomitant]
     Active Substance: OMEPRAZOLE
     Indication: DYSPEPSIA
     Dosage: 20 MG, QD
     Dates: start: 20160812

REACTIONS (5)
  - Pain [Unknown]
  - Hypotension [Unknown]
  - Hyperhidrosis [Unknown]
  - Hypoglycaemia [Not Recovered/Not Resolved]
  - Chronic kidney disease [Unknown]

NARRATIVE: CASE EVENT DATE: 20170510
